FAERS Safety Report 9998082 (Version 2)
Quarter: 2014Q2

REPORT INFORMATION
  Report Type: Spontaneous
  Country: US (occurrence: US)
  Receive Date: 20140311
  Receipt Date: 20140505
  Transmission Date: 20141212
  Serious: Yes (Death, Hospitalization, Other)
  Sender: FDA-Public Use
  Company Number: US-BAXTER-2014BAX011279

PATIENT
  Sex: Male

DRUGS (3)
  1. DIANEAL LOW CALCIUM [Suspect]
     Indication: PERITONEAL DIALYSIS
     Route: 033
     Dates: end: 20140423
  2. DIANEAL LOW CALCIUM [Suspect]
     Indication: PERITONEAL DIALYSIS
     Route: 033
     Dates: end: 20140423
  3. EXTRANEAL [Suspect]
     Indication: PERITONEAL DIALYSIS
     Route: 033
     Dates: end: 20140423

REACTIONS (7)
  - Death [Fatal]
  - Gangrene [Recovering/Resolving]
  - Cardiac arrest [Recovering/Resolving]
  - Postoperative wound infection [Recovered/Resolved]
  - Blood pressure fluctuation [Unknown]
  - Hypotension [Recovering/Resolving]
  - Fluid overload [Recovered/Resolved]
